FAERS Safety Report 8104091-6 (Version None)
Quarter: 2012Q1

REPORT INFORMATION
  Report Type: 
  Country: None (occurrence: None)
  Receive Date: 20120130
  Receipt Date: 20120118
  Transmission Date: 20120608
  Serious: Yes (Hospitalization, Other)
  Sender: FDA-Public Use
  Company Number: OMPQ-NO-1112S-1859

PATIENT
  Age: 67 Year
  Sex: Male

DRUGS (11)
  1. ACETYLSALICYLIC ACID SRT [Concomitant]
  2. FAMOTIDINE (GASTER D) [Concomitant]
  3. WARFARIN (WARFARIN POTASSIUM) [Concomitant]
  4. CARBOCITEINE (MUCODYNE) (CARBOCISTEINE) [Concomitant]
  5. SPIRIVA [Concomitant]
  6. ENALAPRIL MALEATE [Concomitant]
  7. MAGNESIUM OXIDE (MAGMITT) [Concomitant]
  8. CARVEDILOL (ARTIST) [Concomitant]
  9. OMNIPAQUE 70 [Suspect]
     Indication: CARDIAC DISORDER
     Dosage: 91 ML, SINGLE DOSE, INTRA-ARTERIAL
     Route: 013
     Dates: start: 20111201, end: 20111201
  10. SARPOGRELATE HYDROCHLORIDE (ANPLAG) [Concomitant]
  11. LIPITOR [Concomitant]

REACTIONS (9)
  - BLOOD PRESSURE DECREASED [None]
  - ENCEPHALOPATHY [None]
  - PYREXIA [None]
  - DISORIENTATION [None]
  - RESTLESSNESS [None]
  - DISTURBANCE IN ATTENTION [None]
  - ILLOGICAL THINKING [None]
  - ALTERED STATE OF CONSCIOUSNESS [None]
  - GAIT DISTURBANCE [None]
